FAERS Safety Report 6410319-0 (Version None)
Quarter: 2009Q4

REPORT INFORMATION
  Report Type: 
  Country: None (occurrence: None)
  Receive Date: 20091022
  Receipt Date: 20091020
  Transmission Date: 20100525
  Serious: Yes (Life-Threatening, Hospitalization)
  Sender: FDA-Public Use
  Company Number: US-B.I. PHARMACEUTICALS,INC./RIDGEFIELD-2009-BP-11464BP

PATIENT
  Age: 68 Year
  Sex: Male
  Weight: 122.47 kg

DRUGS (10)
  1. AGGRENOX [Suspect]
     Indication: PROPHYLAXIS
     Dosage: 50MG/400MG
     Route: 048
     Dates: start: 20090910, end: 20090923
  2. NORVASC [Concomitant]
     Dosage: 10 MG
  3. SIMVASTATIN [Concomitant]
  4. ACTOS [Concomitant]
  5. SYNTHROID [Concomitant]
  6. HYZAAR [Concomitant]
  7. BYETTA [Concomitant]
  8. LOVAZA [Concomitant]
  9. HYDROCHLOROTHIAZIDE [Concomitant]
  10. ASPIRIN [Concomitant]

REACTIONS (1)
  - THROMBOTIC THROMBOCYTOPENIC PURPURA [None]
